FAERS Safety Report 5760989-5 (Version None)
Quarter: 2008Q2

REPORT INFORMATION
  Report Type: 
  Country: None (occurrence: None)
  Receive Date: 20080606
  Receipt Date: 20080407
  Transmission Date: 20081010
  Serious: No
  Sender: FDA-Public Use
  Company Number: US-ASTRAZENECA-2008UW07030

PATIENT
  Age: 68 Year
  Sex: Female

DRUGS (2)
  1. PRILOSEC [Suspect]
     Indication: REFLUX OESOPHAGITIS
     Route: 048
  2. NUMEROUS MEDICATIONS [Concomitant]

REACTIONS (2)
  - DRUG INEFFECTIVE [None]
  - DYSPEPSIA [None]
